FAERS Safety Report 4722542-1 (Version None)
Quarter: 2005Q3

REPORT INFORMATION
  Report Type: 
  Country: None (occurrence: None)
  Receive Date: 20050722
  Receipt Date: 20050712
  Transmission Date: 20060218
  Serious: Yes (Hospitalization)
  Sender: FDA-Public Use
  Company Number: AU-JNJFOC-20050702050

PATIENT
  Sex: Male

DRUGS (1)
  1. REMINYL [Suspect]
     Indication: DRUG USE FOR UNKNOWN INDICATION
     Route: 048

REACTIONS (3)
  - DUODENAL ULCER PERFORATION [None]
  - MUSCLE RIGIDITY [None]
  - TREMOR [None]
